FAERS Safety Report 6663292-4 (Version None)
Quarter: 2010Q2

REPORT INFORMATION
  Report Type: 
  Country: None (occurrence: None)
  Receive Date: 20100401
  Receipt Date: 20100329
  Transmission Date: 20101027
  Serious: Yes (Hospitalization, Other)
  Sender: FDA-Public Use
  Company Number: US-TEVA-229205USA

PATIENT
  Sex: Male

DRUGS (1)
  1. AMPHETAMINES [Suspect]

REACTIONS (5)
  - BLOOD PRESSURE INCREASED [None]
  - INSOMNIA [None]
  - OEDEMA PERIPHERAL [None]
  - RESTLESSNESS [None]
  - THROMBOSIS [None]
